FAERS Safety Report 12708826 (Version 1)
Quarter: 2016Q3

REPORT INFORMATION
  Report Type: Spontaneous
  Country: US (occurrence: US)
  Receive Date: 20160901
  Receipt Date: 20160901
  Transmission Date: 20161109
  Serious: No
  Sender: FDA-Public Use
  Company Number: US-PFIZER INC-2016402744

PATIENT

DRUGS (1)
  1. BACTERIOSTATIC SODIUM CHLORIDE [Suspect]
     Active Substance: SODIUM CHLORIDE
     Dosage: UNK (0.9%SODIUM CHLORIDE INJECTION)

REACTIONS (3)
  - Product formulation issue [Unknown]
  - Nodule [Unknown]
  - Drug ineffective [Unknown]
